FAERS Safety Report 8869652 (Version 1)
Quarter: 2012Q4

REPORT INFORMATION
  Report Type: 
  Country: BE (occurrence: BE)
  Receive Date: 20121028
  Receipt Date: 20121028
  Transmission Date: 20130627
  Serious: Yes (Other)
  Sender: FDA-Public Use
  Company Number: BE-JNJFOC-20121010081

PATIENT
  Sex: Female

DRUGS (1)
  1. REMICADE [Suspect]
     Indication: EXPOSURE VIA SEMEN
     Route: 050

REACTIONS (2)
  - Abortion spontaneous [Unknown]
  - Exposure during pregnancy [Recovered/Resolved]
